FAERS Safety Report 22293599 (Version 1)
Quarter: 2023Q2

REPORT INFORMATION
  Report Type: Spontaneous
  Country: US (occurrence: US)
  Receive Date: 20230508
  Receipt Date: 20230508
  Transmission Date: 20230722
  Serious: Yes (Other)
  Sender: FDA-Public Use
  Company Number: US-VELOXIS PHARMACEUTICALS, INC.-2023-VEL-00301

PATIENT
  Sex: Female

DRUGS (6)
  1. ENVARSUS XR [Suspect]
     Active Substance: TACROLIMUS
     Indication: Prophylaxis against transplant rejection
     Dosage: TACROLIMUS TROUGH LEVEL WAS 5-8NG/ML DURING MONTHS 4?6
     Route: 048
  2. ENVARSUS XR [Suspect]
     Active Substance: TACROLIMUS
     Dosage: TACROLIMUS TROUGH LEVEL WAS 5?6NG/ML DURING MONTHS 7?12
     Route: 048
  3. ENVARSUS XR [Suspect]
     Active Substance: TACROLIMUS
     Dosage: TACROLIMUS TROUGH LEVEL WAS 3?5NG/ML AFTER THE FIRST YEAR POSTTRANSPLANT
     Route: 048
  4. AZATHIOPRINE [Suspect]
     Active Substance: AZATHIOPRINE
     Indication: Prophylaxis against transplant rejection
     Dosage: 1MG/KG (APPROXIMATELY 50?75MG)
  5. LAPINE T-LYMPHOCYTE IMMUNE GLOBULIN [Suspect]
     Active Substance: LAPINE T-LYMPHOCYTE IMMUNE GLOBULIN
     Indication: Prophylaxis against transplant rejection
     Dosage: 4.5MG/KG IBW (3 DIVIDED DOSES AT THE TIME OF UTX AND UNTIL POSTTRANSPLANT DAY 5 BASED ON LAB RESULTS
  6. METHYLPREDNISOLONE [Suspect]
     Active Substance: METHYLPREDNISOLONE
     Indication: Prophylaxis against transplant rejection
     Dosage: 1000 MILLIGRAM AT THE TIME OF UTX

REACTIONS (4)
  - Transplant rejection [Unknown]
  - Incision site erythema [Unknown]
  - Urinary tract infection [Unknown]
  - Off label use [Unknown]
